FAERS Safety Report 24636083 (Version 1)
Quarter: 2024Q4

REPORT INFORMATION
  Report Type: Spontaneous
  Country: US (occurrence: None)
  Receive Date: 20241118
  Receipt Date: 20241118
  Transmission Date: 20250115
  Serious: No
  Sender: Public
  Company Number: None

PATIENT
  Age: 57 Year
  Sex: Female
  Weight: 127.01 kg

DRUGS (1)
  1. COSENTYX [Suspect]
     Active Substance: SECUKINUMAB
     Indication: Psoriasis
     Dosage: OTHER FREQUENCY : EVERY4WKSASDIRECTED;?
     Route: 058
     Dates: start: 202310

REACTIONS (4)
  - Headache [None]
  - Diarrhoea [None]
  - Abdominal discomfort [None]
  - Cough [None]
